FAERS Safety Report 13703095 (Version 2)
Quarter: 2017Q3

REPORT INFORMATION
  Report Type: Report from Study
  Country: US (occurrence: US)
  Receive Date: 20170629
  Receipt Date: 20170830
  Transmission Date: 20171127
  Serious: Yes (Death)
  Sender: FDA-Public Use
  Company Number: US-PFIZER INC-2017281038

PATIENT
  Age: 30 Year
  Sex: Male

DRUGS (3)
  1. FENTANYL. [Suspect]
     Active Substance: FENTANYL
     Dosage: UNK
  2. SERTRALINE [Concomitant]
     Active Substance: SERTRALINE HYDROCHLORIDE
     Dosage: UNK
  3. DIPHENHYDRAMINE HCL [Suspect]
     Active Substance: DIPHENHYDRAMINE HYDROCHLORIDE
     Dosage: UNK

REACTIONS (1)
  - Toxicity to various agents [Fatal]
